FAERS Safety Report 9444011 (Version 2)
Quarter: 2013Q3

REPORT INFORMATION
  Report Type: Spontaneous
  Country: US (occurrence: US)
  Receive Date: 20130807
  Receipt Date: 20130824
  Transmission Date: 20140515
  Serious: No
  Sender: FDA-Public Use
  Company Number: US-009507513-1307USA013124

PATIENT
  Age: 54 Year
  Sex: Female

DRUGS (6)
  1. VICTRELIS [Suspect]
     Indication: HEPATITIS C
     Dosage: 800MG THREE TIMES DAILY
     Route: 048
     Dates: start: 20130628, end: 20130808
  2. PEGASYS [Suspect]
  3. RIBAPAK [Suspect]
  4. VITAMIN B (UNSPECIFIED) [Concomitant]
  5. VITAMIN C [Concomitant]
  6. MILK THISTLE [Concomitant]

REACTIONS (4)
  - Platelet count decreased [Unknown]
  - Transfusion [Unknown]
  - Dizziness [Recovering/Resolving]
  - Fatigue [Recovering/Resolving]
